FAERS Safety Report 6287288-X (Version None)
Quarter: 2009Q3

REPORT INFORMATION
  Report Type: 
  Country: None (occurrence: None)
  Receive Date: 20090728
  Receipt Date: 20090725
  Transmission Date: 20100115
  Serious: Yes (Death)
  Sender: FDA-Public Use
  Company Number: PHHY2009IN30876

PATIENT
  Age: 21 Year
  Sex: Male

DRUGS (1)
  1. ASUNRA [Suspect]
     Dosage: 400 MG, BID

REACTIONS (1)
  - HEPATITIS C [None]
